FAERS Safety Report 9188821 (Version 1)
Quarter: 2013Q1

REPORT INFORMATION
  Report Type: Spontaneous
  Country: DE (occurrence: DE)
  Receive Date: 20130326
  Receipt Date: 20130326
  Transmission Date: 20140127
  Serious: Yes (Other)
  Sender: FDA-Public Use
  Company Number: DE-BRISTOL-MYERS SQUIBB COMPANY-17480252

PATIENT
  Age: 7 None
  Sex: 0

DRUGS (1)
  1. ABILIFY [Suspect]

REACTIONS (1)
  - Coma [Not Recovered/Not Resolved]
